FAERS Safety Report 6299793-0 (Version None)
Quarter: 2009Q3

REPORT INFORMATION
  Report Type: 
  Country: None (occurrence: None)
  Receive Date: 20090806
  Receipt Date: 20090727
  Transmission Date: 20100115
  Serious: Yes (Other)
  Sender: FDA-Public Use
  Company Number: US-ELI_LILLY_AND_COMPANY-US200908000092

PATIENT
  Sex: Male

DRUGS (4)
  1. STRATTERA [Suspect]
     Dosage: UNK, DAILY (1/D)
     Route: 065
     Dates: start: 20090101, end: 20090522
  2. STRATTERA [Suspect]
     Dosage: 25 MG, UNKNOWN
     Route: 065
     Dates: start: 20090526, end: 20090528
  3. OMNICEF [Concomitant]
     Dates: start: 20090527, end: 20090528
  4. MOTRIN [Concomitant]
     Dosage: UNK, UNKNOWN
     Route: 065
     Dates: start: 20090527, end: 20090528

REACTIONS (5)
  - DYSTONIA [None]
  - HALLUCINATION [None]
  - PHARYNGITIS [None]
  - PYREXIA [None]
  - VIRAL INFECTION [None]
